FAERS Safety Report 7376780-2 (Version None)
Quarter: 2011Q1

REPORT INFORMATION
  Report Type: 
  Country: None (occurrence: None)
  Receive Date: 20110325
  Receipt Date: 20110321
  Transmission Date: 20110831
  Serious: Yes (Hospitalization)
  Sender: FDA-Public Use
  Company Number: IT-ASTRAZENECA-2011SE15926

PATIENT
  Age: 13960 Day
  Sex: Male

DRUGS (4)
  1. CIPRALEX [Suspect]
     Indication: INTENTIONAL OVERDOSE
     Route: 048
     Dates: end: 20110318
  2. NEXIUM [Suspect]
     Indication: INTENTIONAL OVERDOSE
     Route: 048
     Dates: start: 20110318, end: 20110318
  3. TALOFEN [Suspect]
     Indication: INTENTIONAL OVERDOSE
     Dosage: 4G/100 ML ORAL DROPS, SOLUTION FLACON 30 ML, 20 ML ONCE/SINGLE ADMINISTRATION
     Route: 048
     Dates: start: 20110318, end: 20110318
  4. DEPAKENE [Suspect]
     Indication: INTENTIONAL OVERDOSE
     Route: 048
     Dates: start: 20110318, end: 20110318

REACTIONS (3)
  - SINUS TACHYCARDIA [None]
  - INTENTIONAL OVERDOSE [None]
  - SOPOR [None]
